FAERS Safety Report 13391264 (Version 1)
Quarter: 2017Q1

REPORT INFORMATION
  Report Type: Report from Study
  Country: DE (occurrence: DE)
  Receive Date: 20170331
  Receipt Date: 20170331
  Transmission Date: 20170429
  Serious: Yes (Other)
  Sender: FDA-Public Use
  Company Number: DE-INCYTE CORPORATION-2015IN006060

PATIENT
  Age: 69 Year
  Sex: Male

DRUGS (1)
  1. JAKAVI [Suspect]
     Active Substance: RUXOLITINIB
     Indication: MYELOFIBROSIS
     Dosage: UNK
     Route: 065
     Dates: start: 20111116

REACTIONS (6)
  - Second primary malignancy [Recovered/Resolved with Sequelae]
  - Second primary malignancy [Recovered/Resolved]
  - Bowen^s disease [Recovered/Resolved]
  - Bowen^s disease [Recovered/Resolved with Sequelae]
  - Basal cell carcinoma [Recovered/Resolved]
  - Epistaxis [Recovered/Resolved]

NARRATIVE: CASE EVENT DATE: 20150807
